FAERS Safety Report 21663440 (Version 2)
Quarter: 2023Q1

REPORT INFORMATION
  Report Type: Report from Study
  Country: US (occurrence: US)
  Receive Date: 20221130
  Receipt Date: 20230118
  Transmission Date: 20230418
  Serious: No
  Sender: FDA-Public Use
  Company Number: US-ABBVIE-22K-163-4290019-00

PATIENT
  Sex: Female

DRUGS (3)
  1. IMBRUVICA [Suspect]
     Active Substance: IBRUTINIB
     Indication: Chronic lymphocytic leukaemia
     Route: 048
     Dates: start: 202002
  2. PREDNISONE [Concomitant]
     Active Substance: PREDNISONE
     Indication: Product used for unknown indication
     Dosage: 21MG?7 DAYS OF ONE TABLET AND 7 DAYS OF HALF TABLET.
  3. DOXYCYCLINE [Concomitant]
     Active Substance: DOXYCYCLINE
     Indication: Product used for unknown indication
     Dosage: 100MG?1 TABLET TWICE DAILY

REACTIONS (21)
  - Balance disorder [Unknown]
  - Dysgeusia [Unknown]
  - Glaucoma [Unknown]
  - Lip swelling [Recovering/Resolving]
  - Dysphagia [Unknown]
  - Paranasal sinus hypersecretion [Unknown]
  - Nail discolouration [Unknown]
  - Hangnail [Unknown]
  - Dry mouth [Unknown]
  - Oral pain [Unknown]
  - Depression [Unknown]
  - Decreased appetite [Unknown]
  - Arthropod bite [Unknown]
  - White blood cell count increased [Unknown]
  - Asthenia [Unknown]
  - Gait disturbance [Unknown]
  - Fatigue [Unknown]
  - Onychoclasis [Unknown]
  - Pruritus [Unknown]
  - Oral discomfort [Unknown]
  - Glossodynia [Unknown]
